FAERS Safety Report 8624141-8 (Version None)
Quarter: 2012Q3

REPORT INFORMATION
  Report Type: 
  Country: None (occurrence: None)
  Receive Date: 20120827
  Receipt Date: 20120820
  Transmission Date: 20120928
  Serious: Yes (Life-Threatening, Other)
  Sender: FDA-Public Use
  Company Number: US-JNJFOC-20120604301

PATIENT
  Sex: Male
  Weight: 86.18 kg

DRUGS (7)
  1. CYANOCOBALAMIN [Concomitant]
     Indication: NUTRITIONAL SUPPORT
     Dates: start: 20120605, end: 20120612
  2. OXYCODONE HCL [Concomitant]
     Indication: PAIN
     Dates: start: 20120604, end: 20120612
  3. DOCUSATE SODIUM [Concomitant]
     Indication: ABNORMAL FAECES
     Dates: start: 20120604, end: 20120612
  4. XARELTO [Suspect]
     Indication: EMBOLISM VENOUS
     Route: 048
     Dates: start: 20120605, end: 20120607
  5. OXYCONTIN [Concomitant]
     Indication: PAIN
     Dates: start: 20120604, end: 20120612
  6. FERROUS SULFATE TAB [Concomitant]
     Indication: MINERAL SUPPLEMENTATION
     Dates: start: 20120604, end: 20120612
  7. XARELTO [Suspect]
     Indication: KNEE ARTHROPLASTY
     Route: 048
     Dates: start: 20120605, end: 20120607

REACTIONS (2)
  - PULMONARY EMBOLISM [None]
  - OXYGEN SATURATION DECREASED [None]
